FAERS Safety Report 20076984 (Version 1)
Quarter: 2021Q4

REPORT INFORMATION
  Report Type: Report from Study
  Country: DE (occurrence: DE)
  Receive Date: 20211116
  Receipt Date: 20211116
  Transmission Date: 20220303
  Serious: Yes (Hospitalization, Other)
  Sender: FDA-Public Use
  Company Number: DE-JNJFOC-20211116943

PATIENT
  Age: 8 Decade
  Sex: Male
  Weight: 62 kg

DRUGS (4)
  1. BORTEZOMIB [Suspect]
     Active Substance: BORTEZOMIB
     Indication: Plasma cell myeloma
     Dosage: 2.34 MILLIGRAM
     Route: 058
     Dates: start: 20210831, end: 20211101
  2. DEXAMETHASONE [Suspect]
     Active Substance: DEXAMETHASONE
     Indication: Plasma cell myeloma
     Dosage: 40 MILLIGRAM
     Route: 042
     Dates: start: 20210831, end: 20211102
  3. DARZALEX [Suspect]
     Active Substance: DARATUMUMAB
     Indication: Plasma cell myeloma
     Dosage: 1.094 MILLIGRAM
     Route: 042
     Dates: start: 20210831, end: 20211101
  4. THALIDOMIDE [Suspect]
     Active Substance: THALIDOMIDE
     Indication: Product used for unknown indication
     Dosage: 100 MILLIGRAM
     Route: 048
     Dates: start: 20210831, end: 20211101

REACTIONS (2)
  - Inguinal hernia [Recovered/Resolved]
  - Testicular torsion [Recovered/Resolved]

NARRATIVE: CASE EVENT DATE: 20211104
